FAERS Safety Report 5140362-3 (Version None)
Quarter: 2006Q4

REPORT INFORMATION
  Report Type: 
  Country: None (occurrence: None)
  Receive Date: 20061031
  Receipt Date: 20060524
  Transmission Date: 20070319
  Serious: Yes (Hospitalization)
  Sender: FDA-Public Use
  Company Number: US-ROCHE-449414

PATIENT
  Age: 79 Year
  Sex: Female

DRUGS (4)
  1. BONIVA [Suspect]
     Indication: OSTEOPOROSIS
     Route: 065
     Dates: end: 20060415
  2. NIASPAN [Concomitant]
     Dosage: DOSING REGIMEN QH
     Route: 048
     Dates: start: 20040526
  3. SYNTHROID [Concomitant]
     Indication: HYPOTHYROIDISM
     Dosage: GIVEN EVERY DAY
     Route: 048
  4. AVAPRO [Concomitant]
     Indication: HYPERTENSION
     Dosage: OTHER INDICATION TYPE 2 DIABETIC NEUROPATHY, TAKEN EVERY DAY
     Route: 048

REACTIONS (4)
  - CHEST PAIN [None]
  - MUSCULOSKELETAL CHEST PAIN [None]
  - PAIN IN EXTREMITY [None]
  - PLEURAL EFFUSION [None]
